FAERS Safety Report 9577079 (Version 1)
Quarter: 2013Q4

REPORT INFORMATION
  Report Type: Spontaneous
  Country: US (occurrence: US)
  Receive Date: 20131001
  Receipt Date: 20131001
  Transmission Date: 20140711
  Serious: No
  Sender: FDA-Public Use
  Company Number: US-AMGEN-USASP2013006414

PATIENT
  Age: 59 Year
  Sex: Female
  Weight: 105.22 kg

DRUGS (8)
  1. ENBREL [Suspect]
     Indication: PSORIATIC ARTHROPATHY
     Dosage: 50 MG, QWK
     Route: 058
  2. JANUVIA [Concomitant]
     Dosage: 25 MG, UNK
  3. LOVASTATIN [Concomitant]
     Dosage: 20 MG, UNK
  4. LISINOPRIL + HIDROCLOROTIAZIDA [Concomitant]
     Dosage: 20-12.5
  5. METFORMIN [Concomitant]
     Dosage: 750 MG ER, UNK
  6. ASPIRIN [Concomitant]
     Dosage: 81 MG, UNK
  7. TEMOVATE [Concomitant]
     Dosage: 0.05%
  8. CALCIUM + VIT D [Concomitant]
     Dosage: UNK

REACTIONS (1)
  - Back pain [Recovered/Resolved]
